FAERS Safety Report 12341026 (Version 1)
Quarter: 2016Q2

REPORT INFORMATION
  Report Type: Spontaneous
  Country: NO (occurrence: NO)
  Receive Date: 20160506
  Receipt Date: 20160506
  Transmission Date: 20160815
  Serious: Yes (Hospitalization)
  Sender: FDA-Public Use
  Company Number: NO-GE HEALTHCARE MEDICAL DIAGNOSTICS-OSCN-E2B_00000247

PATIENT
  Age: 63 Year
  Sex: Female

DRUGS (4)
  1. OMNISCAN [Suspect]
     Active Substance: GADODIAMIDE
     Indication: DIAGNOSTIC PROCEDURE
  2. MANNITOL. [Suspect]
     Active Substance: MANNITOL
     Route: 048
     Dates: start: 20160414, end: 20160414
  3. OMNISCAN [Suspect]
     Active Substance: GADODIAMIDE
     Indication: PRODUCT USED FOR UNKNOWN INDICATION
     Route: 042
     Dates: start: 20160414, end: 20160414
  4. GLUCAGON NOVO NORDISK [Suspect]
     Active Substance: GLUCAGON
     Route: 042
     Dates: start: 20160414, end: 20160414

REACTIONS (6)
  - Nausea [Unknown]
  - Muscular weakness [Unknown]
  - Malaise [Unknown]
  - Dizziness [Unknown]
  - Vomiting [Unknown]
  - Chills [Unknown]

NARRATIVE: CASE EVENT DATE: 20160414
